FAERS Safety Report 8258005-9 (Version None)
Quarter: 2012Q2

REPORT INFORMATION
  Report Type: 
  Country: None (occurrence: None)
  Receive Date: 20120404
  Receipt Date: 20120327
  Transmission Date: 20120825
  Serious: Yes (Hospitalization)
  Sender: FDA-Public Use
  Company Number: US-BAYER-2011-096139

PATIENT
  Age: 25 Year
  Sex: Female
  Weight: 73.016 kg

DRUGS (5)
  1. YASMIN [Suspect]
     Indication: CONTRACEPTION
     Dosage: UNK
     Route: 048
     Dates: start: 20060401, end: 20070301
  2. ZOFRAN [Concomitant]
     Dosage: 4 MG, PRN
     Route: 048
  3. BENTYL [Concomitant]
     Indication: ABDOMINAL PAIN
     Dosage: 10 UNK, UNK
     Route: 048
  4. PROTONIX [Concomitant]
     Dosage: 40 MG, UNK
     Route: 048
  5. ELIDEL [Concomitant]
     Dosage: UNK UNK, BID
     Route: 061

REACTIONS (7)
  - PAIN [None]
  - GENERAL PHYSICAL HEALTH DETERIORATION [None]
  - BILIARY DYSKINESIA [None]
  - EMOTIONAL DISTRESS [None]
  - ANXIETY [None]
  - GALLBLADDER INJURY [None]
  - SCAR [None]
